FAERS Safety Report 15651092 (Version 1)
Quarter: 2018Q4

REPORT INFORMATION
  Report Type: Spontaneous
  Country: CH (occurrence: CH)
  Receive Date: 20181123
  Receipt Date: 20181123
  Transmission Date: 20190205
  Serious: Yes (Other)
  Sender: FDA-Public Use
  Company Number: CH-ROCHE-2217666

PATIENT
  Sex: Female

DRUGS (3)
  1. TAMOXIFEN [Suspect]
     Active Substance: TAMOXIFEN
     Indication: PRODUCT USED FOR UNKNOWN INDICATION
     Route: 065
     Dates: start: 201705, end: 201707
  2. XELODA [Suspect]
     Active Substance: CAPECITABINE
     Indication: BREAST CANCER
     Route: 048
     Dates: start: 201505, end: 201705
  3. XELODA [Suspect]
     Active Substance: CAPECITABINE
     Route: 048
     Dates: start: 201707, end: 201710

REACTIONS (1)
  - Disease progression [Unknown]
